FAERS Safety Report 9803746 (Version 1)
Quarter: 2014Q1

REPORT INFORMATION
  Report Type: Spontaneous
  Country: US (occurrence: US)
  Receive Date: 20140108
  Receipt Date: 20140108
  Transmission Date: 20141002
  Serious: No
  Sender: FDA-Public Use
  Company Number: US-GLAXOSMITHKLINE-A1031981A

PATIENT
  Sex: Male

DRUGS (4)
  1. LOVAZA [Suspect]
     Indication: NON-ALCOHOLIC STEATOHEPATITIS
     Dosage: 1CAP TWICE PER DAY
     Route: 048
     Dates: start: 201301
  2. LISINOPRIL [Concomitant]
  3. URSODIOL [Concomitant]
  4. PROPANOLOL [Concomitant]

REACTIONS (1)
  - Platelet count decreased [Not Recovered/Not Resolved]
